FAERS Safety Report 8560437 (Version 3)
Quarter: 2012Q4

REPORT INFORMATION
  Report Type: Report from Study
  Country: CY (occurrence: CY)
  Receive Date: 20120514
  Receipt Date: 20121126
  Transmission Date: 20130627
  Serious: Yes (Other)
  Sender: FDA-Public Use
  Company Number: PHHY2012CY039981

PATIENT
  Age: 69 Year
  Sex: Male
  Weight: 75 kg

DRUGS (2)
  1. ZOLEDRONATE [Suspect]
     Indication: METASTASES TO BONE
     Dosage: 4 mg / 5 ml per month
     Dates: start: 20110714, end: 20120329
  2. SUNITINIB [Concomitant]
     Indication: RENAL CANCER
     Dosage: 50 mg, every 6 weeks
     Dates: start: 201108, end: 201208

REACTIONS (6)
  - Osteonecrosis of jaw [Recovering/Resolving]
  - Tooth infection [Not Recovered/Not Resolved]
  - Pain in jaw [Unknown]
  - Aphagia [Unknown]
  - Exposed bone in jaw [Unknown]
  - Bone lesion [Unknown]
